FAERS Safety Report 4721880-6 (Version None)
Quarter: 2005Q3

REPORT INFORMATION
  Report Type: 
  Country: None (occurrence: None)
  Receive Date: 20050721
  Receipt Date: 20050524
  Transmission Date: 20060218
  Serious: No
  Sender: FDA-Public Use
  Company Number: US-BRISTOL-MYERS SQUIBB COMPANY-12980025

PATIENT
  Age: 78 Year
  Sex: Female
  Weight: 68 kg

DRUGS (1)
  1. COUMADIN [Suspect]
     Indication: CARDIAC FIBRILLATION
     Dosage: 5 MG MONDAY, 2.5 MG TUESDAY AND WEDNESDAY, 5 MG THURSDAY, 2.5 MG FRIDAY AND SATURDAY, 5 MG SUNDAY.

REACTIONS (2)
  - PRURITUS [None]
  - URINE OUTPUT INCREASED [None]
